FAERS Safety Report 4677897-3 (Version None)
Quarter: 2005Q2

REPORT INFORMATION
  Report Type: 
  Country: None (occurrence: None)
  Receive Date: 20050531
  Receipt Date: 20050519
  Transmission Date: 20051028
  Serious: Yes (Hospitalization)
  Sender: FDA-Public Use
  Company Number: FR-GLAXOSMITHKLINE-B0381918A

PATIENT
  Age: 45 Year
  Sex: Female

DRUGS (1)
  1. TELZIR [Suspect]
     Dosage: 700MG TWICE PER DAY
     Route: 048
     Dates: start: 20050413, end: 20050423

REACTIONS (2)
  - FACE OEDEMA [None]
  - RASH [None]
